FAERS Safety Report 23863297 (Version 1)
Quarter: 2024Q2

REPORT INFORMATION
  Report Type: Spontaneous
  Country: US (occurrence: None)
  Receive Date: 20240515
  Receipt Date: 20240515
  Transmission Date: 20240716
  Serious: Yes (Other)
  Sender: FDA-Public Use
  Company Number: None

PATIENT
  Age: 58 Year
  Sex: Female

DRUGS (1)
  1. ENBREL [Suspect]
     Active Substance: BENZYL ALCOHOL\ETANERCEPT
     Dosage: 502 MG WEEKLY  SUBCUTANEOUS
     Route: 058

REACTIONS (4)
  - Fatigue [None]
  - Hypoaesthesia oral [None]
  - Oropharyngeal pain [None]
  - Diarrhoea [None]

NARRATIVE: CASE EVENT DATE: 20240430
